FAERS Safety Report 4555049-5 (Version None)
Quarter: 2005Q1

REPORT INFORMATION
  Report Type: 
  Country: None (occurrence: None)
  Receive Date: 20041228
  Receipt Date: 20040621
  Transmission Date: 20050727
  Serious: Yes (Other)
  Sender: FDA-Public Use
  Company Number: PHEH2004US04086

PATIENT
  Age: 51 Year
  Sex: Female

DRUGS (17)
  1. AREDIA [Suspect]
     Indication: METASTASES TO BONE
     Dates: start: 20010116, end: 20030430
  2. ZOMETA [Suspect]
     Indication: METASTASES TO BONE
     Dosage: 4 MG OVER 15 MINUTES
     Dates: start: 20030604, end: 20030910
  3. CAPECITABINE (CAPECITABINE) [Concomitant]
  4. EPOETIN ALFA (EPOETIN ALFA) [Concomitant]
  5. FULVESTRANT (FULVESTRANT) [Concomitant]
  6. TAXOL [Concomitant]
  7. DEXAMETHASONE SODIUM PHOSPHATE [Concomitant]
  8. DIPHENHYDRAMINE HCL [Concomitant]
  9. METHYLPREDNISOLONE [Concomitant]
  10. RANITIDINE HYDROCHLORIDE [Concomitant]
  11. CHLORHEXIDINE (CHLORHEXIDINE) [Concomitant]
  12. METHADONE HCL [Concomitant]
  13. OXYCODONE (OXYCODONE) [Concomitant]
  14. SYNTHROID [Concomitant]
  15. VIOXX [Concomitant]
  16. ONDANSETRON HCL [Concomitant]
  17. DOXORUBICIN HCL [Concomitant]

REACTIONS (2)
  - OSTEONECROSIS [None]
  - TOOTH EXTRACTION [None]
